FAERS Safety Report 19001706 (Version 1)
Quarter: 2021Q1

REPORT INFORMATION
  Report Type: Spontaneous
  Country: US (occurrence: US)
  Receive Date: 20210312
  Receipt Date: 20210312
  Transmission Date: 20210420
  Serious: No
  Sender: FDA-Public Use
  Company Number: US-FARMAPROD-202012-1752

PATIENT
  Age: 59 Year
  Sex: Female

DRUGS (16)
  1. BRIMONIDINE TARTRATE. [Concomitant]
     Active Substance: BRIMONIDINE TARTRATE
  2. MELATONIN [Concomitant]
     Active Substance: MELATONIN
  3. PREVACID [Concomitant]
     Active Substance: LANSOPRAZOLE
  4. OFLOXACIN. [Concomitant]
     Active Substance: OFLOXACIN
  5. MOTRIN IB [Concomitant]
     Active Substance: IBUPROFEN
  6. CELEXA [Concomitant]
     Active Substance: CITALOPRAM HYDROBROMIDE
  7. NAPROXEN. [Concomitant]
     Active Substance: NAPROXEN
     Dosage: 125 MG/5 ML
     Route: 048
  8. OXYBUTYNIN CHLORIDE ER [Concomitant]
     Active Substance: OXYBUTYNIN CHLORIDE
  9. OXERVATE [Suspect]
     Active Substance: CENEGERMIN-BKBJ
     Indication: NEUROTROPHIC KERATOPATHY
     Route: 047
     Dates: start: 20201214
  10. DORZOLAMIDE HCL [Concomitant]
     Active Substance: DORZOLAMIDE HYDROCHLORIDE
  11. BLACK COHOSH [Concomitant]
     Active Substance: BLACK COHOSH
  12. GABAPENTIN. [Concomitant]
     Active Substance: GABAPENTIN
  13. TIMOLOL MALEATE. [Concomitant]
     Active Substance: TIMOLOL MALEATE
  14. VITAMIN D2 [Concomitant]
     Active Substance: ERGOCALCIFEROL
  15. BACLOFEN. [Concomitant]
     Active Substance: BACLOFEN
  16. TECFIDERA [Concomitant]
     Active Substance: DIMETHYL FUMARATE

REACTIONS (1)
  - Eye pain [Not Recovered/Not Resolved]

NARRATIVE: CASE EVENT DATE: 202012
